FAERS Safety Report 5145572-7 (Version None)
Quarter: 2006Q4

REPORT INFORMATION
  Report Type: 
  Country: None (occurrence: None)
  Receive Date: 20061101
  Receipt Date: 20061017
  Transmission Date: 20070319
  Serious: Yes (Death, Hospitalization, Other)
  Sender: FDA-Public Use
  Company Number: 163-21880-06100440

PATIENT
  Age: 71 Year
  Sex: Male
  Weight: 98.9 kg

DRUGS (13)
  1. REVLIMID [Suspect]
     Indication: MANTLE CELL LYMPHOMA
     Dosage: 25 MG, DAILY ON DAYS 1-21, ORAL
     Route: 048
     Dates: start: 20060916, end: 20061006
  2. RITUXIMAB (RITUXIMAB) [Suspect]
     Indication: MANTLE CELL LYMPHOMA
     Dates: start: 20060916, end: 20061006
  3. AUGMENTIN '125' [Concomitant]
  4. ALTACE [Concomitant]
  5. BETAPACE [Concomitant]
  6. ZOCOR [Concomitant]
  7. HYDROCHLOROTHIAZIDE [Concomitant]
  8. ALLOPURINOL [Concomitant]
  9. NIASPAN [Concomitant]
  10. MAGNESIUM (MAGNESIUM) [Concomitant]
  11. VYTORIN (INEGY) [Concomitant]
  12. ASPIRIN [Concomitant]
  13. ZYRTEC [Concomitant]

REACTIONS (25)
  - ANOREXIA [None]
  - ATRIAL FIBRILLATION [None]
  - ATRIAL FLUTTER [None]
  - BLOOD PRESSURE INCREASED [None]
  - CARDIAC ARREST [None]
  - CHILLS [None]
  - COUGH [None]
  - DIZZINESS [None]
  - DYSPNOEA [None]
  - FATIGUE [None]
  - HYPERHIDROSIS [None]
  - HYPOTENSION [None]
  - HYPOXIA [None]
  - INFECTION [None]
  - LETHARGY [None]
  - METABOLIC ACIDOSIS [None]
  - MULTI-ORGAN FAILURE [None]
  - PALLOR [None]
  - PALPITATIONS [None]
  - PHARYNGOLARYNGEAL PAIN [None]
  - RENAL FAILURE [None]
  - RENAL FAILURE ACUTE [None]
  - RESPIRATORY ACIDOSIS [None]
  - SEPTIC SHOCK [None]
  - TROPONIN INCREASED [None]
